FAERS Safety Report 21155928 (Version 1)
Quarter: 2022Q3

REPORT INFORMATION
  Report Type: Spontaneous
  Country: FR (occurrence: FR)
  Receive Date: 20220801
  Receipt Date: 20220801
  Transmission Date: 20221027
  Serious: Yes (Other)
  Sender: FDA-Public Use
  Company Number: None

PATIENT
  Age: 80 Year
  Sex: Male

DRUGS (6)
  1. CLOZAPINE [Suspect]
     Active Substance: CLOZAPINE
     Dates: start: 20220518
  2. TERALITHE [Suspect]
     Active Substance: LITHIUM CARBONATE
     Dates: start: 20220518
  3. SINEMET [Suspect]
     Active Substance: CARBIDOPA\LEVODOPA
     Dosage: TOOK 20 CP OF 100/10 MG
     Dates: start: 20220518
  4. BROMAZEPAM [Suspect]
     Active Substance: BROMAZEPAM
     Dates: start: 20220518
  5. LORAZEPAM [Suspect]
     Active Substance: LORAZEPAM
     Dates: start: 20220518
  6. LEVOTHYROXINE [Concomitant]
     Active Substance: LEVOTHYROXINE
     Dates: start: 20220518

REACTIONS (2)
  - Somnolence [Unknown]
  - Wrong schedule [Unknown]

NARRATIVE: CASE EVENT DATE: 20220518
